FAERS Safety Report 9883341 (Version 2)
Quarter: 2014Q1

REPORT INFORMATION
  Report Type: Spontaneous
  Country: JP (occurrence: JP)
  Receive Date: 20140210
  Receipt Date: 20140210
  Transmission Date: 20141002
  Serious: Yes (Hospitalization, Disabling, Other)
  Sender: FDA-Public Use
  Company Number: JP-ROCHE-1307224

PATIENT
  Age: 70 Year
  Sex: Female
  Weight: 56 kg

DRUGS (12)
  1. LUCENTIS [Suspect]
     Indication: RETINAL VEIN OCCLUSION
     Route: 050
     Dates: start: 20130912
  2. LUCENTIS [Suspect]
     Route: 050
     Dates: start: 20131107
  3. GATIFLO [Concomitant]
     Route: 065
     Dates: start: 20131107, end: 20131109
  4. GATIFLO [Concomitant]
     Route: 065
     Dates: start: 20131114, end: 20131121
  5. CRAVIT [Concomitant]
     Route: 065
     Dates: start: 20131107, end: 20131107
  6. KALLIKREIN [Concomitant]
     Route: 065
     Dates: start: 20130228
  7. BLOPRESS [Concomitant]
  8. CRESTOR [Concomitant]
  9. LOXOPROFEN [Concomitant]
  10. REBAMIPIDE [Concomitant]
  11. TRAMCET [Concomitant]
  12. MOHRUS [Concomitant]

REACTIONS (2)
  - Endophthalmitis [Recovered/Resolved]
  - Cystoid macular oedema [Unknown]
